FAERS Safety Report 7571973-3 (Version None)
Quarter: 2011Q2

REPORT INFORMATION
  Report Type: 
  Country: None (occurrence: None)
  Receive Date: 20110624
  Receipt Date: 20110617
  Transmission Date: 20111010
  Serious: Yes (Hospitalization)
  Sender: FDA-Public Use
  Company Number: US-US-EMD SERONO, INC.-7066266

PATIENT
  Sex: Female
  Weight: 72 kg

DRUGS (4)
  1. REBIF [Suspect]
     Indication: MULTIPLE SCLEROSIS
     Route: 058
     Dates: start: 20100603, end: 20101101
  2. REBIF [Suspect]
     Route: 058
     Dates: start: 20101101
  3. REBIF [Suspect]
     Route: 058
     Dates: start: 20110101
  4. TYLENOL PM [Concomitant]
     Indication: PREMEDICATION

REACTIONS (1)
  - UTERINE LEIOMYOMA [None]
